FAERS Safety Report 6143900-7 (Version None)
Quarter: 2009Q2

REPORT INFORMATION
  Report Type: 
  Country: None (occurrence: None)
  Receive Date: 20090406
  Receipt Date: 20090326
  Transmission Date: 20091009
  Serious: Yes (Other)
  Sender: FDA-Public Use
  Company Number: PHHY2009BR11345

PATIENT
  Age: 62 Year
  Sex: Male
  Weight: 88 kg

DRUGS (4)
  1. DIOVAN [Suspect]
     Indication: HYPERTENSION
     Dosage: 1 TABLET (80MG) DAILY
     Route: 048
     Dates: end: 20090311
  2. DIOVAN [Suspect]
     Dosage: 160 MG DAILY, IN THE MORNING
     Route: 048
  3. INDAPAMIDE [Concomitant]
     Indication: BLOOD PRESSURE
     Dosage: UNK
  4. NATRILIX - SLOW RELEASE [Concomitant]
     Indication: BLOOD PRESSURE
     Dosage: 1 TABLET A DAY
     Route: 048
     Dates: start: 20090311

REACTIONS (5)
  - ARTERIAL BYPASS OPERATION [None]
  - ARTERIAL OCCLUSIVE DISEASE [None]
  - CATARACT [None]
  - CATHETER PLACEMENT [None]
  - DIABETES MELLITUS [None]
